FAERS Safety Report 11857782 (Version 1)
Quarter: 2015Q4

REPORT INFORMATION
  Report Type: Spontaneous
  Country: US (occurrence: None)
  Receive Date: 20151221
  Receipt Date: 20151221
  Transmission Date: 20160305
  Serious: No
  Sender: FDA-Public Use
  Company Number: None

PATIENT
  Age: 49 Year
  Sex: Male
  Weight: 117.94 kg

DRUGS (8)
  1. VITAMIN D [Concomitant]
     Active Substance: CHOLECALCIFEROL
  2. LEVOTHYROXINE. [Concomitant]
     Active Substance: LEVOTHYROXINE
  3. SAME [Concomitant]
  4. ALGAE OIL [Concomitant]
  5. COQ10 [Concomitant]
     Active Substance: UBIDECARENONE
  6. VITAMIN C [Concomitant]
     Active Substance: ASCORBIC ACID
  7. AMBIEN CR [Suspect]
     Active Substance: ZOLPIDEM TARTRATE
     Indication: INSOMNIA
     Dosage: 1
     Route: 048
     Dates: start: 20081231, end: 20151111
  8. MULTIVITAMIN [Concomitant]
     Active Substance: VITAMINS

REACTIONS (5)
  - Therapy change [None]
  - Insomnia [None]
  - Abnormal dreams [None]
  - Nightmare [None]
  - Drug ineffective [None]

NARRATIVE: CASE EVENT DATE: 20151111
